FAERS Safety Report 6739871-2 (Version None)
Quarter: 2010Q2

REPORT INFORMATION
  Report Type: 
  Country: None (occurrence: None)
  Receive Date: 20100525
  Receipt Date: 20100520
  Transmission Date: 20101027
  Serious: Yes (Hospitalization, Other)
  Sender: FDA-Public Use
  Company Number: CA-BRISTOL-MYERS SQUIBB COMPANY-15114135

PATIENT
  Age: 52 Year
  Sex: Male
  Weight: 117 kg

DRUGS (7)
  1. CISPLATIN [Suspect]
     Indication: OESOPHAGEAL CARCINOMA
     Dosage: DAY 1 + 8 OF 21 DAY CYCLE
     Route: 042
     Dates: start: 20100223, end: 20100413
  2. IRINOTECAN HCL [Suspect]
     Indication: OESOPHAGEAL CARCINOMA
     Dosage: DAY 1 + 8 OF 21 DAY CYCLE
     Route: 042
     Dates: start: 20100223, end: 20100413
  3. RADIOTHERAPY [Suspect]
     Indication: OESOPHAGEAL CARCINOMA
     Dates: end: 20100420
  4. KYTRIL [Concomitant]
     Dosage: ALSO TAKEN ORALLY ON SAME DATE
     Route: 042
     Dates: start: 20100406, end: 20100416
  5. DEXAMETHASONE [Concomitant]
     Dosage: ALSO TAKEN ORALLY ON SAME DATE
     Route: 042
     Dates: start: 20100406, end: 20100416
  6. MORPHINE [Concomitant]
     Route: 048
     Dates: start: 20100401
  7. VALPROIC ACID [Concomitant]
     Route: 048
     Dates: end: 20100211

REACTIONS (3)
  - DIZZINESS [None]
  - HYPOTENSION [None]
  - NEUTROPENIA [None]
